FAERS Safety Report 25531760 (Version 2)
Quarter: 2025Q4

REPORT INFORMATION
  Report Type: Report from Study
  Country: US (occurrence: US)
  Receive Date: 20250709
  Receipt Date: 20251030
  Transmission Date: 20260118
  Serious: No
  Sender: MALLINCKRODT
  Company Number: US-MALLINCKRODT-MNK202504082

PATIENT
  Age: 62 Year
  Sex: Female

DRUGS (1)
  1. CORTICOTROPIN [Suspect]
     Active Substance: CORTICOTROPIN
     Indication: Sympathetic ophthalmia
     Dosage: 80 UNITS

REACTIONS (5)
  - Swelling of eyelid [Unknown]
  - Visual impairment [Unknown]
  - Hypersomnia [Recovering/Resolving]
  - Back pain [Unknown]
  - Eyelid pain [Unknown]
